FAERS Safety Report 25481026 (Version 2)
Quarter: 2025Q2

REPORT INFORMATION
  Report Type: Spontaneous
  Country: CN (occurrence: CN)
  Receive Date: 20250625
  Receipt Date: 20250627
  Transmission Date: 20250717
  Serious: Yes (Other)
  Sender: ABBVIE
  Company Number: CN-ABBVIE-6336311

PATIENT
  Age: 40 Year
  Sex: Male

DRUGS (2)
  1. ADALIMUMAB [Suspect]
     Active Substance: ADALIMUMAB
     Indication: Generalised pustular psoriasis
     Route: 058
     Dates: start: 202401
  2. ACITRETIN [Suspect]
     Active Substance: ACITRETIN
     Indication: Generalised pustular psoriasis
     Route: 048
     Dates: start: 202403

REACTIONS (3)
  - Generalised pustular psoriasis [Unknown]
  - Therapeutic product effect incomplete [Unknown]
  - Inappropriate schedule of product administration [Unknown]

NARRATIVE: CASE EVENT DATE: 20240101
